FAERS Safety Report 10604441 (Version 1)
Quarter: 2014Q4

REPORT INFORMATION
  Report Type: Spontaneous
  Country: US (occurrence: US)
  Receive Date: 20141124
  Receipt Date: 20141124
  Transmission Date: 20150529
  Serious: No
  Sender: FDA-Public Use
  Company Number: US-SA-2014SA049958

PATIENT

DRUGS (1)
  1. RENVELA [Suspect]
     Active Substance: SEVELAMER CARBONATE
     Indication: PRODUCT USED FOR UNKNOWN INDICATION
     Dosage: 4 TABLETS WITH EACH MEAL THREE TMES A DAY AND 4 TABLETS WITH SNACKS 2-3 TIMES A DAY
     Route: 048

REACTIONS (1)
  - Constipation [Recovered/Resolved]
